FAERS Safety Report 7758727-X (Version None)
Quarter: 2011Q3

REPORT INFORMATION
  Report Type: 
  Country: None (occurrence: None)
  Receive Date: 20110910
  Receipt Date: 20110910
  Transmission Date: 20111222
  Serious: Yes (Hospitalization)
  Sender: FDA-Public Use
  Company Number: None

PATIENT
  Age: 57 Year
  Sex: Male
  Weight: 98.2 kg

DRUGS (2)
  1. ALBUTEROL [Suspect]
     Indication: CHRONIC OBSTRUCTIVE PULMONARY DISEASE
     Dosage: ONE ONCE INHALE
     Route: 055
     Dates: start: 20110805, end: 20110805
  2. ALBUTEROL [Suspect]
     Indication: DYSPNOEA
     Dosage: ONE ONCE INHALE
     Route: 055
     Dates: start: 20110805, end: 20110805

REACTIONS (1)
  - DYSPNOEA [None]
